FAERS Safety Report 7726584-3 (Version None)
Quarter: 2011Q3

REPORT INFORMATION
  Report Type: 
  Country: None (occurrence: None)
  Receive Date: 20110902
  Receipt Date: 20110829
  Transmission Date: 20111222
  Serious: Yes (Death, Other)
  Sender: FDA-Public Use
  Company Number: PHHY2011JP77342

PATIENT
  Age: 69 Year
  Sex: Female

DRUGS (1)
  1. ZOMETA [Suspect]
     Indication: METASTASES TO BONE
     Dosage: UNK UKN, UNK
     Route: 041
     Dates: start: 20060301, end: 20081101

REACTIONS (3)
  - NEOPLASM MALIGNANT [None]
  - NEOPLASM PROGRESSION [None]
  - OSTEONECROSIS OF JAW [None]
